FAERS Safety Report 17026841 (Version 1)
Quarter: 2019Q4

REPORT INFORMATION
  Report Type: Spontaneous
  Country: FR (occurrence: FR)
  Receive Date: 20191113
  Receipt Date: 20191113
  Transmission Date: 20200122
  Serious: Yes (Other)
  Sender: FDA-Public Use
  Company Number: FR-MYLANLABS-2019M1107812

PATIENT
  Age: 90 Year
  Sex: Male
  Weight: 61 kg

DRUGS (4)
  1. DALACINE                           /00166002/ [Suspect]
     Active Substance: CLINDAMYCIN HYDROCHLORIDE
     Indication: ARTHRITIS BACTERIAL
     Dosage: 50 MILLIGRAM, QD
     Route: 048
     Dates: start: 20190228, end: 20190304
  2. HYDROXYZINE ARROW [Suspect]
     Active Substance: HYDROXYZINE HYDROCHLORIDE
     Indication: PRODUCT USED FOR UNKNOWN INDICATION
     Dosage: 25 MILLIGRAM, QD
     Route: 048
     Dates: start: 20190223, end: 20190306
  3. CASPOFUNGIN MYLAN [Suspect]
     Active Substance: CASPOFUNGIN
     Indication: ARTHRITIS BACTERIAL
     Dosage: 50 MILLIGRAM, QD
     Route: 042
     Dates: start: 20190223, end: 20190304
  4. CIPROFLOXACINE ARROW [Suspect]
     Active Substance: CIPROFLOXACIN
     Indication: ARTHRITIS BACTERIAL
     Dosage: 1000 MILLIGRAM, QD
     Route: 048
     Dates: start: 20190228, end: 20190304

REACTIONS (2)
  - Rash [Recovered/Resolved]
  - Agranulocytosis [Recovered/Resolved]

NARRATIVE: CASE EVENT DATE: 20190304
